FAERS Safety Report 25360075 (Version 2)
Quarter: 2025Q3

REPORT INFORMATION
  Report Type: Report from Study
  Country: JP (occurrence: JP)
  Receive Date: 20250527
  Receipt Date: 20250704
  Transmission Date: 20251021
  Serious: Yes (Death, Other)
  Sender: TAKEDA
  Company Number: JP-TAKEDA-2025TJP004973

PATIENT
  Sex: Male

DRUGS (1)
  1. PROTEIN C [Suspect]
     Active Substance: PROTEIN C
     Indication: Product used for unknown indication

REACTIONS (1)
  - Death [Fatal]
